FAERS Safety Report 9758544 (Version 1)
Quarter: 2013Q4

REPORT INFORMATION
  Report Type: Spontaneous
  Country: US (occurrence: None)
  Receive Date: 20131216
  Receipt Date: 20131216
  Transmission Date: 20140711
  Serious: No
  Sender: FDA-Public Use
  Company Number: CABO-13002440

PATIENT
  Age: 80 Year
  Sex: Male
  Weight: 91 kg

DRUGS (1)
  1. COMETRIQ (CABOZANTINIB) CAPSULE [Suspect]
     Indication: PROSTATE CANCER
     Dosage: 140 MG, QD, ORAL?80 MG, QD, ORAL?100 MG, QD, ORAL

REACTIONS (12)
  - Speech disorder [None]
  - Mental impairment [None]
  - Bone pain [None]
  - Gastrooesophageal reflux disease [None]
  - Constipation [None]
  - Fatigue [None]
  - Asthenia [None]
  - Decreased appetite [None]
  - Hypogeusia [None]
  - Diarrhoea [None]
  - Neuropathy peripheral [None]
  - Dysgeusia [None]
